FAERS Safety Report 4887743-0 (Version None)
Quarter: 2006Q1

REPORT INFORMATION
  Report Type: 
  Country: None (occurrence: None)
  Receive Date: 20060119
  Receipt Date: 20060102
  Transmission Date: 20060701
  Serious: Yes (Other)
  Sender: FDA-Public Use
  Company Number: 2006BL000010

PATIENT
  Age: 2 Year
  Sex: Female
  Weight: 10.8863 kg

DRUGS (1)
  1. ALBUTEROL SULFATE [Suspect]
     Indication: WHEEZING
     Dosage: 1 DOSE FORM; 4 TIMES A DAY; OROPHARYNGEAL
     Route: 049
     Dates: start: 20051230, end: 20060102

REACTIONS (10)
  - ANOREXIA [None]
  - COLLAPSE OF LUNG [None]
  - CONSTIPATION [None]
  - COUGH [None]
  - DRUG PRESCRIBING ERROR [None]
  - EAR INFECTION [None]
  - HYPERSOMNIA [None]
  - INFECTIOUS MONONUCLEOSIS [None]
  - PNEUMONIA [None]
  - VIRAL INFECTION [None]
